FAERS Safety Report 5722906-3 (Version None)
Quarter: 2008Q2

REPORT INFORMATION
  Report Type: 
  Country: None (occurrence: None)
  Receive Date: 20080425
  Receipt Date: 20080417
  Transmission Date: 20081010
  Serious: Yes (Other)
  Sender: FDA-Public Use
  Company Number: WAES 0801FRA00044

PATIENT
  Age: 52 Year
  Sex: Male

DRUGS (7)
  1. RALTEGRAVIR POTASSIUM [Suspect]
     Indication: HIV INFECTION
     Dosage: 400 MG/BID PO
     Route: 048
     Dates: start: 20071108, end: 20080111
  2. BROMAZEPAM [Concomitant]
  3. DARUNAVIR [Concomitant]
  4. ETRAVIRINE [Concomitant]
  5. FENOFIBRATE [Concomitant]
  6. PERINDOPRIL ARGININE [Concomitant]
  7. RITONAVIR [Concomitant]

REACTIONS (2)
  - DYSPNOEA [None]
  - RHABDOMYOLYSIS [None]
